FAERS Safety Report 10089751 (Version 1)
Quarter: 2014Q2

REPORT INFORMATION
  Report Type: Spontaneous
  Country: US (occurrence: US)
  Receive Date: 20140421
  Receipt Date: 20140421
  Transmission Date: 20141212
  Serious: Yes (Hospitalization, Other)
  Sender: FDA-Public Use
  Company Number: US-PFIZER INC-2014110485

PATIENT
  Sex: Male
  Weight: 90.7 kg

DRUGS (1)
  1. CELEBREX [Suspect]
     Indication: ARTHRITIS
     Dosage: 1 DF, DAILY
     Dates: end: 201404

REACTIONS (4)
  - Haematochezia [Recovered/Resolved]
  - Drug interaction [Unknown]
  - Gastric haemorrhage [Unknown]
  - Ulcer [Unknown]
